FAERS Safety Report 4609090-4 (Version None)
Quarter: 2005Q2

REPORT INFORMATION
  Report Type: 
  Country: None (occurrence: None)
  Receive Date: 20050228
  Receipt Date: 20041201
  Transmission Date: 20051028
  Serious: Yes (Other)
  Sender: FDA-Public Use
  Company Number: US-JNJFOC-20040404440

PATIENT
  Age: 50 Year
  Sex: Female

DRUGS (4)
  1. RISPERDAL [Suspect]
     Indication: POST-TRAUMATIC STRESS DISORDER
     Dosage: 25 MG, 1 IN 2 WEEK   ; 35 MG   : INTRAMUSCULAR
     Route: 030
     Dates: start: 20040305
  2. RISPERDAL [Suspect]
     Indication: POST-TRAUMATIC STRESS DISORDER
     Dosage: 5 MG, 1 IN 1 DAY, ORAL
     Route: 048
     Dates: start: 20040305, end: 20040328
  3. DEPAKOTE (TABLETS) VALPROATE SEMISODIUM [Concomitant]
  4. SYNTHROID (TABLETS) LEVOTHYROXINE SODIUM [Concomitant]

REACTIONS (15)
  - AMENORRHOEA [None]
  - ANXIETY [None]
  - BLOOD GLUCOSE INCREASED [None]
  - DYSARTHRIA [None]
  - FATIGUE [None]
  - FOOD CRAVING [None]
  - HYPERTENSION [None]
  - HYPOGLYCAEMIA [None]
  - INJECTION SITE REACTION [None]
  - LIBIDO DECREASED [None]
  - OEDEMA [None]
  - SALIVARY HYPERSECRETION [None]
  - TACHYCARDIA [None]
  - VISUAL ACUITY REDUCED [None]
  - WEIGHT INCREASED [None]
